FAERS Safety Report 4973976-1 (Version None)
Quarter: 2006Q2

REPORT INFORMATION
  Report Type: 
  Country: None (occurrence: None)
  Receive Date: 20060410
  Receipt Date: 20060328
  Transmission Date: 20061013
  Serious: Yes (Other)
  Sender: FDA-Public Use
  Company Number: 2006043447

PATIENT
  Age: 53 Year
  Sex: Male
  Weight: 158.759 kg

DRUGS (6)
  1. VIAGRA [Suspect]
     Indication: ILL-DEFINED DISORDER
     Dosage: (100 MG)
     Dates: end: 20040101
  2. LOVASTATIN [Suspect]
     Indication: PROPHYLAXIS
     Dates: start: 20030101, end: 20050101
  3. PRINIVIL [Suspect]
     Indication: HYPERTENSION
     Dosage: 20 MG (10 MG, 2 IN 1 D)
  4. LEVITRA [Suspect]
     Indication: ILL-DEFINED DISORDER
     Dosage: 20 MG
     Dates: start: 20040901
  5. GLYSET (MIGLITOL) [Concomitant]
  6. HYDROCHLOROTHIAZIDE [Concomitant]

REACTIONS (3)
  - ABSCESS [None]
  - ARTHROPATHY [None]
  - DRUG INEFFECTIVE [None]
